FAERS Safety Report 24833420 (Version 1)
Quarter: 2025Q1

REPORT INFORMATION
  Report Type: Spontaneous
  Country: FR (occurrence: FR)
  Receive Date: 20250112
  Receipt Date: 20250112
  Transmission Date: 20250408
  Serious: Yes (Hospitalization)
  Sender: AUROBINDO
  Company Number: FR-AFSSAPS-AN2024001760

PATIENT
  Age: 64 Year
  Sex: Male
  Weight: 93 kg

DRUGS (10)
  1. LACOSAMIDE [Suspect]
     Active Substance: LACOSAMIDE
     Indication: Epilepsy
     Dosage: 100 MILLIGRAM, ONCE A DAY
     Route: 048
     Dates: start: 20240115
  2. ATORVASTATIN [Concomitant]
     Active Substance: ATORVASTATIN
     Indication: Hypercholesterolaemia
     Dosage: 10 MILLIGRAM, ONCE A DAY
     Route: 048
  3. CETIRIZINE HYDROCHLORIDE [Concomitant]
     Active Substance: CETIRIZINE HYDROCHLORIDE
     Indication: Product used for unknown indication
     Dosage: 10 MILLIGRAM, ONCE A DAY
     Route: 048
  4. DIAZEPAM [Concomitant]
     Active Substance: DIAZEPAM
     Indication: Schizoaffective disorder
     Dosage: 1 DOSAGE FORM, ONCE A DAY (10 DROPS - 3 TIMES A DAY)
     Route: 048
  5. DEPAKOTE [Concomitant]
     Active Substance: DIVALPROEX SODIUM
     Indication: Schizoaffective disorder
     Dosage: 2000 MILLIGRAM, ONCE A DAY
     Route: 048
  6. LOXAPINE [Concomitant]
     Active Substance: LOXAPINE
     Indication: Schizoaffective disorder
     Dosage: 15 DOSAGE FORM, ONCE A DAY
     Route: 048
  7. METFORMIN HYDROCHLORIDE [Concomitant]
     Active Substance: METFORMIN HYDROCHLORIDE
     Indication: Type 2 diabetes mellitus
     Dosage: 1000 MILLIGRAM, ONCE A DAY
     Route: 048
  8. POLYETHYLENE GLYCOL 4000 [Concomitant]
     Active Substance: POLYETHYLENE GLYCOL 4000
     Indication: Constipation
     Dosage: 1 DOSAGE FORM, ONCE A DAY (1 SACHET IN THE MORNING AND AT NOON.)
     Route: 048
  9. RISPERIDONE [Concomitant]
     Active Substance: RISPERIDONE
     Indication: Schizoaffective disorder
     Dosage: 4 MILLIGRAM, ONCE A DAY
     Route: 048
  10. TAMSULOSIN HYDROCHLORIDE [Concomitant]
     Active Substance: TAMSULOSIN HYDROCHLORIDE
     Indication: Benign prostatic hyperplasia
     Dosage: 0.4 MILLIGRAM, ONCE A DAY
     Route: 048

REACTIONS (1)
  - Psychiatric decompensation [Recovering/Resolving]

NARRATIVE: CASE EVENT DATE: 20240131
